FAERS Safety Report 5899269-6 (Version None)
Quarter: 2008Q3

REPORT INFORMATION
  Report Type: 
  Country: None (occurrence: None)
  Receive Date: 20080828
  Receipt Date: 20080312
  Transmission Date: 20090109
  Serious: Yes (Hospitalization)
  Sender: FDA-Public Use
  Company Number: CIP08000412

PATIENT
  Age: 61 Year
  Sex: Male

DRUGS (3)
  1. ASACOL [Suspect]
     Indication: CROHN'S DISEASE
     Dosage: 800 MG DAILY, ORAL
     Route: 048
     Dates: start: 20030101, end: 20080101
  2. ASPIRIN [Concomitant]
  3. VITAMINS WITH MINERALS [Concomitant]

REACTIONS (1)
  - PERICARDITIS [None]
